FAERS Safety Report 13859965 (Version 5)
Quarter: 2018Q2

REPORT INFORMATION
  Report Type: Report from Study
  Country: JP (occurrence: JP)
  Receive Date: 20170811
  Receipt Date: 20180518
  Transmission Date: 20180711
  Serious: Yes (Hospitalization)
  Sender: FDA-Public Use
  Company Number: JP-VIFOR (INTERNATIONAL) INC.-VIT-2017-08367

PATIENT
  Age: 78 Year
  Sex: Male
  Weight: 51.7 kg

DRUGS (20)
  1. NESP [Concomitant]
     Active Substance: DARBEPOETIN ALFA
     Dates: end: 20170202
  2. VELPHORO [Suspect]
     Active Substance: FERRIC OXYHYDROXIDE
     Route: 048
     Dates: start: 20170108
  3. GASTER [Concomitant]
     Active Substance: FAMOTIDINE
     Route: 048
  4. CALCIUM CARBONATE. [Concomitant]
     Active Substance: CALCIUM CARBONATE
     Indication: HYPERPHOSPHATAEMIA
     Route: 048
  5. NESP [Concomitant]
     Active Substance: DARBEPOETIN ALFA
     Dates: start: 20160817
  6. REGPARA [Concomitant]
     Active Substance: CINACALCET HYDROCHLORIDE
     Route: 048
     Dates: start: 20170330
  7. ALFACALCIDOL [Concomitant]
     Active Substance: ALFACALCIDOL
     Route: 048
  8. FEBURIC [Concomitant]
     Active Substance: FEBUXOSTAT
     Route: 048
  9. NESP [Concomitant]
     Active Substance: DARBEPOETIN ALFA
     Dates: start: 20170526, end: 20170607
  10. VELPHORO [Suspect]
     Active Substance: FERRIC OXYHYDROXIDE
     Indication: HYPERPHOSPHATAEMIA
     Route: 048
     Dates: start: 20160708, end: 20170107
  11. METHYCOBAL [Concomitant]
     Active Substance: METHYLCOBALAMIN
     Route: 048
  12. MUCOSOLVAN [Concomitant]
     Active Substance: AMBROXOL HYDROCHLORIDE
     Route: 048
  13. REGPARA [Concomitant]
     Active Substance: CINACALCET HYDROCHLORIDE
     Route: 048
     Dates: end: 20170329
  14. MIYA-BM [Concomitant]
     Active Substance: CLOSTRIDIUM BUTYRICUM SPORES STRAIN M-55
     Route: 048
  15. FERROMIA [Concomitant]
     Active Substance: SODIUM FERROUS CITRATE
     Route: 048
  16. DIOVAN [Concomitant]
     Active Substance: VALSARTAN
     Route: 048
  17. NESP [Concomitant]
     Active Substance: DARBEPOETIN ALFA
     Dates: start: 20170609
  18. MUCOSTA [Concomitant]
     Active Substance: REBAMIPIDE
     Route: 048
  19. NESP [Concomitant]
     Active Substance: DARBEPOETIN ALFA
     Dates: end: 20160816
  20. NESP [Concomitant]
     Active Substance: DARBEPOETIN ALFA
     Dates: start: 20170203, end: 20170524

REACTIONS (5)
  - Intestinal obstruction [Recovering/Resolving]
  - C-reactive protein increased [Recovered/Resolved]
  - Infection [Recovered/Resolved]
  - Hyperkalaemia [Recovered/Resolved]
  - Hypertension [Recovered/Resolved]

NARRATIVE: CASE EVENT DATE: 20161204
